FAERS Safety Report 10269629 (Version 1)
Quarter: 2014Q2

REPORT INFORMATION
  Report Type: Spontaneous
  Country: US (occurrence: None)
  Receive Date: 20140626
  Receipt Date: 20140626
  Transmission Date: 20141212
  Serious: Yes (Other)
  Sender: FDA-Public Use
  Company Number: None

PATIENT
  Age: 73 Year
  Sex: Female
  Weight: 47.63 kg

DRUGS (2)
  1. ATIVAN [Suspect]
     Indication: STRESS
     Dosage: 90 PILLS?TWICE DAILY?TAKEN BY MOUTH?TAKEN 5-7 TIMES
     Route: 048
  2. ATIVAN [Suspect]
     Indication: ANXIETY
     Dosage: 90 PILLS?TWICE DAILY?TAKEN BY MOUTH?TAKEN 5-7 TIMES
     Route: 048

REACTIONS (10)
  - Abdominal pain upper [None]
  - Palpitations [None]
  - Heart rate increased [None]
  - Tremor [None]
  - Abdominal distension [None]
  - Eructation [None]
  - Nausea [None]
  - Vomiting [None]
  - Product solubility abnormal [None]
  - Product quality issue [None]
